FAERS Safety Report 8007940-5 (Version None)
Quarter: 2011Q4

REPORT INFORMATION
  Report Type: 
  Country: None (occurrence: None)
  Receive Date: 20111221
  Receipt Date: 20111212
  Transmission Date: 20120403
  Serious: Yes (Other)
  Sender: FDA-Public Use
  Company Number: AUR-APL-2011-05346

PATIENT
  Age: 86 Year
  Sex: Female
  Weight: 72.5755 kg

DRUGS (2)
  1. ATENOLOL [Concomitant]
  2. SIMVASTATIN [Suspect]
     Indication: BLOOD CHOLESTEROL INCREASED
     Dosage: (1 DOSAGE FORMS,L D),ORAL
     Route: 048
     Dates: start: 20110520, end: 20110921

REACTIONS (4)
  - INSOMNIA [None]
  - FATIGUE [None]
  - SYNCOPE [None]
  - MYALGIA [None]
